FAERS Safety Report 8434850-1 (Version None)
Quarter: 2012Q2

REPORT INFORMATION
  Report Type: 
  Country: None (occurrence: None)
  Receive Date: 20120614
  Receipt Date: 20120605
  Transmission Date: 20120825
  Serious: Yes (Other)
  Sender: FDA-Public Use
  Company Number: IT-JNJFOC-20120605670

PATIENT
  Sex: Male

DRUGS (17)
  1. CARMUSTINE [Suspect]
     Indication: BURKITT'S LYMPHOMA
     Route: 065
  2. CARBOPLATIN [Suspect]
     Indication: BURKITT'S LYMPHOMA
     Route: 065
  3. RITUXIMAB [Suspect]
     Indication: BURKITT'S LYMPHOMA
     Route: 065
  4. ETOPOSIDE [Suspect]
     Indication: BURKITT'S LYMPHOMA
     Route: 065
  5. CYTARABINE [Suspect]
     Indication: BURKITT'S LYMPHOMA
     Route: 065
  6. UNKNOWN MEDICATION [Concomitant]
     Indication: PROPHYLAXIS
     Route: 037
  7. VINCRISTINE [Suspect]
     Indication: BURKITT'S LYMPHOMA
     Route: 065
  8. MELPHALAN HYDROCHLORIDE [Suspect]
     Indication: BURKITT'S LYMPHOMA
     Route: 065
  9. RADIOTHERAPY [Suspect]
     Indication: BURKITT'S LYMPHOMA
     Route: 065
  10. CYCLOPHOSPHAMIDE [Suspect]
     Indication: BURKITT'S LYMPHOMA
     Route: 065
  11. CISPLATIN [Suspect]
     Indication: BURKITT'S LYMPHOMA
     Route: 065
  12. DOXORUBICIN HCL [Suspect]
     Indication: BURKITT'S LYMPHOMA
     Route: 042
  13. METHOTREXATE [Suspect]
     Indication: BURKITT'S LYMPHOMA
     Route: 065
  14. IFOSFAMIDE [Suspect]
     Indication: BURKITT'S LYMPHOMA
     Route: 065
  15. GRANULOCYTE COLONY STIMULATING FACTOR [Suspect]
     Indication: BURKITT'S LYMPHOMA
     Route: 065
  16. METHYLPREDNISOLONE [Suspect]
     Indication: BURKITT'S LYMPHOMA
     Route: 065
  17. UNKNOWN MEDICATION [Suspect]
     Indication: BURKITT'S LYMPHOMA
     Dosage: ANTIMICROBIAL PROPHYLAXIS
     Route: 065

REACTIONS (7)
  - DISEASE PROGRESSION [None]
  - NEUTROPENIA [None]
  - CYTOMEGALOVIRUS INFECTION [None]
  - INFECTION [None]
  - THROMBOCYTOPENIA [None]
  - ANAEMIA [None]
  - EPSTEIN-BARR VIRUS INFECTION [None]
